FAERS Safety Report 4387740-8 (Version None)
Quarter: 2004Q2

REPORT INFORMATION
  Report Type: 
  Country: None (occurrence: None)
  Receive Date: 20040630
  Receipt Date: 20040507
  Transmission Date: 20050107
  Serious: Yes (Death, Hospitalization, Other)
  Sender: FDA-Public Use
  Company Number: JP-BRISTOL-MYERS SQUIBB COMPANY-12584561

PATIENT
  Age: 28 Year
  Sex: Female
  Weight: 75 kg

DRUGS (4)
  1. UFT [Suspect]
     Indication: BREAST CANCER
     Route: 048
     Dates: start: 20040303, end: 20040502
  2. ENDOXAN [Concomitant]
     Indication: BREAST CANCER
     Route: 048
     Dates: start: 20040303, end: 20040505
  3. NAUZELIN [Concomitant]
     Indication: PROPHYLAXIS OF NAUSEA AND VOMITING
     Route: 048
     Dates: start: 20040303, end: 20040505
  4. RADIOTHERAPY [Concomitant]
     Dosage: DOSASGE FORM = GRAY
     Dates: start: 20040316, end: 20040401

REACTIONS (3)
  - DISSEMINATED INTRAVASCULAR COAGULATION [None]
  - HEPATIC FAILURE [None]
  - HEPATITIS FULMINANT [None]
